FAERS Safety Report 16016809 (Version 3)
Quarter: 2019Q2

REPORT INFORMATION
  Report Type: Spontaneous
  Country: JP (occurrence: JP)
  Receive Date: 20190228
  Receipt Date: 20190528
  Transmission Date: 20190711
  Serious: No
  Sender: FDA-Public Use
  Company Number: JP-ELI_LILLY_AND_COMPANY-JP201902013000

PATIENT
  Age: 65 Year
  Sex: Male
  Weight: 61 kg

DRUGS (4)
  1. ERBITUX [Suspect]
     Active Substance: CETUXIMAB
     Indication: TONGUE CANCER METASTATIC
     Dosage: 600 MG/M2, WEEKLY (1/W)
     Route: 041
     Dates: start: 20180618, end: 20180618
  2. ERBITUX [Suspect]
     Active Substance: CETUXIMAB
     Dosage: 410 MG/M2, WEEKLY (1/W)
     Route: 041
     Dates: start: 20180625, end: 20190423
  3. FLUOROURACIL. [Suspect]
     Active Substance: FLUOROURACIL
     Indication: TONGUE CANCER METASTATIC
     Dosage: 660 MG, UNKNOWN
     Route: 041
     Dates: start: 20180619, end: 20180622
  4. CDDP [Suspect]
     Active Substance: CISPLATIN
     Indication: TONGUE CANCER METASTATIC
     Dosage: 130 MG, UNKNOWN
     Route: 041
     Dates: start: 20180619, end: 20180619

REACTIONS (1)
  - Inappropriate antidiuretic hormone secretion [Recovered/Resolved]

NARRATIVE: CASE EVENT DATE: 20180625
